FAERS Safety Report 6388017-1 (Version None)
Quarter: 2009Q4

REPORT INFORMATION
  Report Type: 
  Country: None (occurrence: None)
  Receive Date: 20091005
  Receipt Date: 20090923
  Transmission Date: 20100525
  Serious: Yes (Other)
  Sender: FDA-Public Use
  Company Number: DE-PFIZER INC-2009277848

PATIENT
  Age: 42 Year

DRUGS (6)
  1. HYDROXYZINE HCL [Suspect]
     Dosage: 2500 MG, SINGLE
     Route: 048
     Dates: start: 20090923, end: 20090923
  2. PARACETAMOL [Suspect]
     Dosage: 10000 MG, SINGLE
     Route: 048
     Dates: start: 20090923, end: 20090923
  3. AMOXIBETA [Suspect]
     Dosage: 10000 MG, SINGLE
     Route: 048
     Dates: start: 20090923, end: 20090923
  4. CITALOPRAM [Suspect]
     Dosage: 3600 MG, SINGLE
     Route: 048
     Dates: start: 20090923, end: 20090923
  5. IBUPROFEN [Suspect]
     Dosage: 8000 MG, SINGLE
     Dates: start: 20090923, end: 20090923
  6. TORSEMIDE [Suspect]
     Dosage: 100 MG, SINGLE
     Route: 048
     Dates: start: 20090923, end: 20090923

REACTIONS (4)
  - CARDIOVASCULAR INSUFFICIENCY [None]
  - MYDRIASIS [None]
  - OVERDOSE [None]
  - SUICIDE ATTEMPT [None]
